FAERS Safety Report 9830491 (Version 1)
Quarter: 2014Q1

REPORT INFORMATION
  Report Type: Report from Study
  Country: US (occurrence: US)
  Receive Date: 20140120
  Receipt Date: 20140120
  Transmission Date: 20141002
  Serious: Yes (Hospitalization)
  Sender: FDA-Public Use
  Company Number: US-GLAXOSMITHKLINE-B0961439A

PATIENT
  Age: 52 Year
  Sex: Female
  Weight: 72 kg

DRUGS (12)
  1. WELLBUTRIN [Suspect]
     Indication: DEPRESSION
  2. INVESTIGATIONAL DRUG [Concomitant]
     Indication: PLASMA CELL MYELOMA
     Route: 042
     Dates: start: 20131105
  3. AMBIEN [Concomitant]
     Dosage: 10MG AS REQUIRED
     Route: 048
  4. LORAZEPAM [Concomitant]
     Dosage: 1MG FOUR TIMES PER DAY
     Route: 048
  5. OXYCONTIN [Concomitant]
     Dosage: 60MG TWICE PER DAY
     Route: 048
  6. ACYCLOVIR [Concomitant]
     Dosage: 400MG TWICE PER DAY
     Route: 048
  7. DEXAMETHASONE [Concomitant]
     Indication: PLASMA CELL MYELOMA
     Dosage: 4MG TEN TIMES PER DAY
     Route: 048
  8. ONDANSETRON [Concomitant]
     Indication: NAUSEA
     Dosage: 8MG THREE TIMES PER DAY
     Route: 048
  9. PANTOPRAZOLE [Concomitant]
     Dosage: 40MG PER DAY
     Route: 048
  10. PROMETHAZINE [Concomitant]
     Indication: NAUSEA
     Route: 048
  11. SODIUM BICARBONATE [Concomitant]
     Dosage: 650MG TWICE PER DAY
     Route: 048
  12. VENLAFAXINE [Concomitant]
     Dosage: 75MG PER DAY
     Route: 048

REACTIONS (8)
  - Vomiting [Recovered/Resolved]
  - Nausea [Recovered/Resolved]
  - Hepatic enzyme abnormal [Unknown]
  - Hyperuricaemia [Unknown]
  - Renal failure acute [Recovered/Resolved]
  - Hypercalcaemia [Recovered/Resolved]
  - Thrombocytopenia [Unknown]
  - Renal failure acute [Unknown]
